FAERS Safety Report 4393838-0 (Version None)
Quarter: 2004Q3

REPORT INFORMATION
  Report Type: 
  Country: None (occurrence: None)
  Receive Date: 20040706
  Receipt Date: 20040621
  Transmission Date: 20050211
  Serious: Yes (Other)
  Sender: FDA-Public Use
  Company Number: RB-775-2004

PATIENT
  Age: 19 Year
  Sex: Male

DRUGS (1)
  1. BUPRENORPHINE HYDROCHLORIDE [Suspect]
     Indication: SUICIDE ATTEMPT
     Dosage: 4 MG QD
     Route: 048
     Dates: start: 20040609, end: 20040609

REACTIONS (4)
  - INTENTIONAL MISUSE [None]
  - MIOSIS [None]
  - SOMNOLENCE [None]
  - SUICIDE ATTEMPT [None]
